FAERS Safety Report 5527295-5 (Version None)
Quarter: 2007Q4

REPORT INFORMATION
  Report Type: 
  Country: None (occurrence: None)
  Receive Date: 20071128
  Receipt Date: 20071122
  Transmission Date: 20080405
  Serious: Yes (Life-Threatening)
  Sender: FDA-Public Use
  Company Number: B0486676A

PATIENT
  Age: 72 Year
  Sex: Male

DRUGS (4)
  1. VALTREX [Suspect]
     Indication: HERPES ZOSTER
     Dosage: 1000MG THREE TIMES PER DAY
     Route: 048
     Dates: start: 20070906, end: 20070911
  2. LOXONIN [Concomitant]
     Dosage: 180MG PER DAY
     Route: 048
     Dates: start: 20070906, end: 20070911
  3. MUCOSTA [Concomitant]
     Route: 048
  4. CYANOCOBALAMIN [Concomitant]
     Dosage: 1500MCG PER DAY
     Route: 065
     Dates: start: 20070906, end: 20070912

REACTIONS (6)
  - DECREASED APPETITE [None]
  - HEADACHE [None]
  - MALAISE [None]
  - NAUSEA [None]
  - RENAL FAILURE ACUTE [None]
  - RENAL FUNCTION TEST ABNORMAL [None]
